FAERS Safety Report 10271424 (Version 4)
Quarter: 2014Q3

REPORT INFORMATION
  Report Type: Spontaneous
  Country: DK (occurrence: IT)
  Receive Date: 20140701
  Receipt Date: 20140729
  Transmission Date: 20150326
  Serious: Yes (Hospitalization, Congenital Anomaly)
  Sender: FDA-Public Use
  Company Number: IT-FRI-1000026311

PATIENT
  Sex: Male
  Weight: 2.86 kg

DRUGS (2)
  1. ESCITALOPRAM [Suspect]
     Active Substance: ESCITALOPRAM OXALATE
     Dosage: 10 MG
     Route: 064
     Dates: start: 20110218, end: 20110818
  2. XANAX [Suspect]
     Active Substance: ALPRAZOLAM
     Dosage: 5 MG
     Route: 064
     Dates: start: 20110317, end: 20110818

REACTIONS (5)
  - Dermatitis [Unknown]
  - Rhinitis [Unknown]
  - Anaemia [Unknown]
  - Foetal exposure during pregnancy [Recovered/Resolved]
  - Gastrooesophageal reflux disease [Unknown]
